FAERS Safety Report 10253799 (Version 1)
Quarter: 2014Q2

REPORT INFORMATION
  Report Type: Report from Study
  Country: AR (occurrence: AR)
  Receive Date: 20140623
  Receipt Date: 20140623
  Transmission Date: 20141212
  Serious: Yes (Other)
  Sender: FDA-Public Use
  Company Number: AR-US-EMD SERONO, INC.-7299937

PATIENT
  Sex: Female

DRUGS (2)
  1. REBIF [Suspect]
     Indication: MULTIPLE SCLEROSIS
     Dates: start: 19991202, end: 20050322
  2. REBIF [Suspect]
     Dates: start: 20091206, end: 2013

REACTIONS (2)
  - Neoplasm malignant [Not Recovered/Not Resolved]
  - Apathy [Not Recovered/Not Resolved]
